FAERS Safety Report 20175208 (Version 1)
Quarter: 2021Q4

REPORT INFORMATION
  Report Type: Spontaneous
  Country: US (occurrence: None)
  Receive Date: 20211213
  Receipt Date: 20211213
  Transmission Date: 20220303
  Serious: Yes (Hospitalization, Other)
  Sender: FDA-Public Use
  Company Number: US-MLMSERVICE-20211126-3241515-2

PATIENT
  Age: 68 Year
  Sex: Male

DRUGS (1)
  1. CAPECITABINE [Suspect]
     Active Substance: CAPECITABINE
     Indication: Colon cancer
     Dosage: UNKNOWN
     Route: 065

REACTIONS (5)
  - Gastrointestinal injury [Recovered/Resolved]
  - Enteritis [Recovered/Resolved]
  - Tachycardia [Recovered/Resolved]
  - Cryptitis [Recovered/Resolved]
  - Hypotension [Recovered/Resolved]
